FAERS Safety Report 11750834 (Version 2)
Quarter: 2016Q1

REPORT INFORMATION
  Report Type: Spontaneous
  Country: US (occurrence: US)
  Receive Date: 20151118
  Receipt Date: 20160120
  Transmission Date: 20160525
  Serious: Yes (Other)
  Sender: FDA-Public Use
  Company Number: US-ASTRAZENECA-2015SF07127

PATIENT
  Age: 61 Year
  Sex: Female
  Weight: 127.9 kg

DRUGS (14)
  1. BYDUREON [Suspect]
     Active Substance: EXENATIDE
     Indication: WEIGHT DECREASED
     Route: 058
     Dates: start: 20151017, end: 20151017
  2. BYDUREON [Suspect]
     Active Substance: EXENATIDE
     Indication: TYPE 2 DIABETES MELLITUS
     Route: 058
     Dates: start: 20151017, end: 20151017
  3. LASIX [Concomitant]
     Active Substance: FUROSEMIDE
     Indication: DIURETIC THERAPY
     Route: 048
     Dates: end: 20151020
  4. VITAMIN D [Concomitant]
     Active Substance: CHOLECALCIFEROL
     Dosage: 600-400
  5. METFORMIN [Concomitant]
     Active Substance: METFORMIN HYDROCHLORIDE
     Indication: TYPE 2 DIABETES MELLITUS
     Route: 048
  6. NORCO [Concomitant]
     Active Substance: ACETAMINOPHEN\HYDROCODONE BITARTRATE
     Indication: BACK PAIN
     Dosage: 7.5-325 MG , THREE TIMES A DAY, AS REQUIRED
     Route: 048
  7. VENTOLIN HFA [Concomitant]
     Active Substance: ALBUTEROL SULFATE
     Dosage: 2 PUFFS, DAILY, AS REQUIRED
  8. LOVASTATIN. [Concomitant]
     Active Substance: LOVASTATIN
     Indication: BLOOD CHOLESTEROL INCREASED
     Route: 048
  9. HYDROCODONE BITARTRATE AND ACETAMINOPHEN [Concomitant]
     Active Substance: ACETAMINOPHEN\HYDROCODONE BITARTRATE
     Dosage: 7.5-750 MG, THREE TIMES A DAY
  10. LASIX [Concomitant]
     Active Substance: FUROSEMIDE
     Indication: DIURETIC THERAPY
     Route: 048
     Dates: start: 20151021, end: 20151024
  11. TEMAZEPAM. [Concomitant]
     Active Substance: TEMAZEPAM
  12. ALBUTEROL SULFATE. [Concomitant]
     Active Substance: ALBUTEROL SULFATE
     Dosage: 2.5 MG/ 3 ML 1 VIAL DAILY AS REQUIRED
  13. CALCIUM [Concomitant]
     Active Substance: CALCIUM
     Dosage: 600
  14. NABUMETONE. [Concomitant]
     Active Substance: NABUMETONE

REACTIONS (12)
  - Dermatitis [Unknown]
  - Obesity [Unknown]
  - Sleep apnoea syndrome [Unknown]
  - Peripheral swelling [Recovering/Resolving]
  - Back pain [Unknown]
  - Restrictive pulmonary disease [Unknown]
  - Polyp [Unknown]
  - Cardiac failure congestive [Unknown]
  - Hyperlipidaemia [Unknown]
  - Pulmonary hypertension [Unknown]
  - Joint swelling [Recovering/Resolving]
  - Gait disturbance [Not Recovered/Not Resolved]

NARRATIVE: CASE EVENT DATE: 20151021
